FAERS Safety Report 4974555-2 (Version None)
Quarter: 2006Q1

REPORT INFORMATION
  Report Type: 
  Country: None (occurrence: None)
  Receive Date: 20060215
  Receipt Date: 20041221
  Transmission Date: 20060701
  Serious: Yes (Other)
  Sender: FDA-Public Use
  Company Number: PROG00204004451

PATIENT
  Sex: Female

DRUGS (3)
  1. PROMETRIUM [Suspect]
     Indication: HORMONE REPLACEMENT THERAPY
     Dosage: 100 MILLIGRAM (S) ORAL
     Route: 048
     Dates: start: 20011221, end: 20040101
  2. CENESTIN [Suspect]
     Indication: HORMONE REPLACEMENT THERAPY
     Dosage: 0.9 MILLIGRAM (S) ORAL
     Route: 048
     Dates: start: 20010612, end: 20020601
  3. MEDROXYPROGESTERONE ACETATE [Suspect]
     Indication: HORMONE REPLACEMENT THERAPY
     Dosage: 10 MILLIGRAM (S) ORAL
     Route: 048
     Dates: start: 20010712, end: 20040601

REACTIONS (1)
  - BREAST CANCER [None]
